FAERS Safety Report 8946168 (Version 2)
Quarter: 2012Q4

REPORT INFORMATION
  Report Type: 
  Country: IT (occurrence: IT)
  Receive Date: 20121204
  Receipt Date: 20121217
  Transmission Date: 20130627
  Serious: Yes (Other)
  Sender: FDA-Public Use
  Company Number: IT-ELI_LILLY_AND_COMPANY-IT201211007161

PATIENT
  Age: 75 Year
  Sex: Female

DRUGS (6)
  1. CYMBALTA [Suspect]
     Indication: DIABETIC NEUROPATHY
     Dosage: 60 mg, qd
     Dates: start: 20120401, end: 20120903
  2. EUTIROX [Concomitant]
     Dosage: UNK, qd
  3. CARDIOASPIRIN [Concomitant]
     Dosage: UNK, qd
  4. METFORMIN [Concomitant]
     Dosage: 850 mg, UNK
     Route: 048
  5. PANTOPRAZOL [Concomitant]
     Dosage: 40 mg, UNK
     Route: 048
  6. SIMVASTIN [Concomitant]
     Dosage: 40 mg, UNK
     Route: 048

REACTIONS (3)
  - Gamma-glutamyltransferase increased [Recovering/Resolving]
  - Blood alkaline phosphatase increased [Recovering/Resolving]
  - Cholestasis [Recovering/Resolving]
